FAERS Safety Report 8551109 (Version 25)
Quarter: 2014Q1

REPORT INFORMATION
  Report Type: Spontaneous
  Country: US (occurrence: US)
  Receive Date: 20120508
  Receipt Date: 20140314
  Transmission Date: 20141002
  Serious: Yes (Other)
  Sender: FDA-Public Use
  Company Number: PHEH2012US009612

PATIENT
  Sex: Female

DRUGS (7)
  1. ZOMETA [Suspect]
     Dosage: 3.5 MG
     Route: 042
     Dates: start: 20060407, end: 200904
  2. PAMIDRONATE [Suspect]
  3. INSULIN [Concomitant]
  4. DIABINESE [Concomitant]
  5. FEMARA [Concomitant]
  6. ZOLOFT [Concomitant]
  7. ZETIA [Concomitant]

REACTIONS (137)
  - Osteonecrosis of jaw [Unknown]
  - Pain [Unknown]
  - Infection [Unknown]
  - Deformity [Unknown]
  - Injury [Unknown]
  - Emotional distress [Unknown]
  - Anxiety [Unknown]
  - Physical disability [Unknown]
  - Tooth abscess [Unknown]
  - Periodontal disease [Unknown]
  - Impaired healing [Unknown]
  - Mouth ulceration [Unknown]
  - Erythema [Unknown]
  - Purulent discharge [Unknown]
  - Exposed bone in jaw [Unknown]
  - Wound [Unknown]
  - Hypertension [Unknown]
  - Central nervous system lesion [Unknown]
  - Metastases to central nervous system [Unknown]
  - Cerebral haemorrhage [Unknown]
  - Metastases to bone [Unknown]
  - Malignant neoplasm progression [Unknown]
  - Bone lesion [Unknown]
  - Malignant melanoma [Unknown]
  - Metastatic malignant melanoma [Unknown]
  - Metastases to skin [Unknown]
  - Metastases to meninges [Unknown]
  - Osteoarthritis [Unknown]
  - Pain in jaw [Unknown]
  - Toothache [Unknown]
  - Jaundice [Unknown]
  - Bile duct obstruction [Unknown]
  - Cholelithiasis [Unknown]
  - Hyperlipidaemia [Unknown]
  - Uterine leiomyoma [Unknown]
  - Anaemia [Unknown]
  - Pathological fracture [Unknown]
  - Rotator cuff syndrome [Unknown]
  - Aortic valve incompetence [Unknown]
  - Rib fracture [Unknown]
  - Jugular vein thrombosis [Unknown]
  - Macular degeneration [Unknown]
  - Osteosclerosis [Unknown]
  - Sinusitis [Unknown]
  - Herpes simplex [Unknown]
  - Hand dermatitis [Unknown]
  - Cheilitis [Unknown]
  - Urinary tract infection [Unknown]
  - Fall [Unknown]
  - Pyogenic granuloma [Unknown]
  - Tooth deposit [Unknown]
  - Chest pain [Unknown]
  - Bundle branch block right [Unknown]
  - Synovial cyst [Unknown]
  - Joint effusion [Unknown]
  - Neuropathy peripheral [Unknown]
  - Vascular calcification [Unknown]
  - Phlebolith [Unknown]
  - Upper limb fracture [Unknown]
  - Muscle atrophy [Unknown]
  - Metastases to spleen [Unknown]
  - Thermal burn [Unknown]
  - Spinal cord compression [Unknown]
  - Vertebral foraminal stenosis [Unknown]
  - Head injury [Unknown]
  - Vision blurred [Unknown]
  - Viral infection [Unknown]
  - Plasma cell myeloma [Unknown]
  - Hypercalcaemia [Unknown]
  - Mental status changes [Unknown]
  - Squamous cell carcinoma of skin [Unknown]
  - Age-related macular degeneration [Unknown]
  - Cataract nuclear [Unknown]
  - Cerebral atrophy [Unknown]
  - Cerebral ventricle dilatation [Unknown]
  - Cerebrovascular disorder [Unknown]
  - Cerebellar atrophy [Unknown]
  - Chronic sinusitis [Unknown]
  - Memory impairment [Unknown]
  - Hearing impaired [Unknown]
  - Micturition urgency [Unknown]
  - Pollakiuria [Unknown]
  - Confusional state [Unknown]
  - Balance disorder [Unknown]
  - Left ventricular hypertrophy [Unknown]
  - Electrocardiogram repolarisation abnormality [Unknown]
  - Renal failure acute [Unknown]
  - Cardiac failure congestive [Unknown]
  - Osteomyelitis [Unknown]
  - Rales [Unknown]
  - Deafness [Unknown]
  - Dyspnoea [Unknown]
  - Subdural haemorrhage [Unknown]
  - Laceration [Unknown]
  - Excoriation [Unknown]
  - Haematoma [Unknown]
  - Mass [Unknown]
  - Facial bones fracture [Unknown]
  - Jaw fracture [Unknown]
  - Cervical vertebral fracture [Unknown]
  - Spinal fracture [Unknown]
  - Ecchymosis [Unknown]
  - Cerebral small vessel ischaemic disease [Unknown]
  - Dental discomfort [Unknown]
  - Gingival swelling [Unknown]
  - Metastases to lymph nodes [Unknown]
  - Tooth loss [Unknown]
  - Femur fracture [Unknown]
  - Humerus fracture [Unknown]
  - Bone callus excessive [Unknown]
  - Skin lesion [Unknown]
  - Subdural haematoma [Unknown]
  - Joint injury [Unknown]
  - Decubitus ulcer [Unknown]
  - Metastases to liver [Unknown]
  - Interstitial lung disease [Unknown]
  - Rib deformity [Unknown]
  - Back pain [Unknown]
  - Stomatitis [Unknown]
  - Neck pain [Unknown]
  - Sinus tachycardia [Unknown]
  - Muscular weakness [Unknown]
  - Pain in extremity [Unknown]
  - Gait disturbance [Unknown]
  - Local swelling [Unknown]
  - Thrombocytopenia [Unknown]
  - Urinary incontinence [Unknown]
  - Decreased appetite [Unknown]
  - Musculoskeletal pain [Unknown]
  - Fatigue [Unknown]
  - Asthenia [Unknown]
  - Bone pain [Unknown]
  - Swelling [Unknown]
  - Therapeutic response decreased [Unknown]
  - Diarrhoea [Unknown]
  - Hyperkalaemia [Unknown]
  - Nausea [Unknown]
